FAERS Safety Report 16846409 (Version 1)
Quarter: 2019Q3

REPORT INFORMATION
  Report Type: Spontaneous
  Country: US (occurrence: US)
  Receive Date: 20190924
  Receipt Date: 20190924
  Transmission Date: 20191005
  Serious: Yes (Hospitalization, Other)
  Sender: FDA-Public Use
  Company Number: US-TEVA-2019-US-1112087

PATIENT
  Age: 21 Year
  Sex: Female

DRUGS (2)
  1. SPIRONOLACTONE. [Suspect]
     Active Substance: SPIRONOLACTONE
     Route: 065
     Dates: start: 2016
  2. ESTRADIOL. [Suspect]
     Active Substance: ESTRADIOL
     Indication: TRANSGENDER HORMONAL THERAPY
     Route: 065
     Dates: start: 2016

REACTIONS (4)
  - Suicidal ideation [Unknown]
  - Tubulointerstitial nephritis [Recovered/Resolved]
  - Gender dysphoria [Unknown]
  - Withdrawal syndrome [Unknown]
